FAERS Safety Report 6557173-4 (Version None)
Quarter: 2010Q1

REPORT INFORMATION
  Report Type: 
  Country: None (occurrence: None)
  Receive Date: 20100127
  Receipt Date: 20100127
  Transmission Date: 20100710
  Serious: Yes (Hospitalization)
  Sender: FDA-Public Use
  Company Number: None

PATIENT
  Sex: Female
  Weight: 56.6 kg

DRUGS (6)
  1. PEG-L ASPARAGINASE (K-H) [Suspect]
     Dosage: 4000 UNITS
  2. VINCRISTINE SULFATE [Suspect]
     Dosage: 4 MG
  3. CYCLOPHOSPHAMIDE [Suspect]
     Dosage: 1600 MG
  4. CYTARABINE [Suspect]
     Dosage: 960 MG
  5. MERCAPTOPURINE [Suspect]
     Dosage: 1400 MG
  6. METHOTREXATE [Suspect]
     Dosage: 60 MG

REACTIONS (6)
  - HEADACHE [None]
  - HYPOAESTHESIA [None]
  - MUSCULAR WEAKNESS [None]
  - NAUSEA [None]
  - SUPERIOR SAGITTAL SINUS THROMBOSIS [None]
  - VOMITING [None]
